FAERS Safety Report 6336114-9 (Version None)
Quarter: 2009Q3

REPORT INFORMATION
  Report Type: 
  Country: None (occurrence: None)
  Receive Date: 20090828
  Receipt Date: 20090828
  Transmission Date: 20100115
  Serious: Yes (Hospitalization)
  Sender: FDA-Public Use
  Company Number: None

PATIENT
  Age: 53 Year
  Sex: Female
  Weight: 92.9874 kg

DRUGS (4)
  1. ANASTROZOLE [Suspect]
     Indication: BREAST CANCER
     Dosage: 1 MG PO QD
     Route: 048
     Dates: start: 20090629
  2. AZDO530 [Suspect]
     Indication: BREAST CANCER
     Dosage: 175MG PO QD
     Route: 048
     Dates: start: 20090706
  3. LEVOTHYROXINE SODIUM [Concomitant]
  4. TAMIFLU [Concomitant]

REACTIONS (3)
  - DISEASE PROGRESSION [None]
  - HAEMORRHAGE INTRACRANIAL [None]
  - METASTASES TO CENTRAL NERVOUS SYSTEM [None]
